FAERS Safety Report 17535021 (Version 1)
Quarter: 2020Q1

REPORT INFORMATION
  Report Type: Spontaneous
  Country: US (occurrence: US)
  Receive Date: 20200312
  Receipt Date: 20200312
  Transmission Date: 20200409
  Serious: Yes (Other)
  Sender: FDA-Public Use
  Company Number: US-TEVA-2020-US-1196889

PATIENT
  Age: 66 Year
  Sex: Female

DRUGS (1)
  1. IMATINIB. [Suspect]
     Active Substance: IMATINIB MESYLATE
     Indication: GASTROINTESTINAL STROMAL TUMOUR
     Route: 065

REACTIONS (7)
  - Neutropenia [Unknown]
  - Cholestasis [Unknown]
  - Hepatic cirrhosis [Unknown]
  - Rash maculo-papular [Unknown]
  - Portal fibrosis [Unknown]
  - Hepatotoxicity [Recovering/Resolving]
  - Ammonia increased [Unknown]
